FAERS Safety Report 13897186 (Version 4)
Quarter: 2018Q1

REPORT INFORMATION
  Report Type: Spontaneous
  Country: DE (occurrence: DE)
  Receive Date: 20170823
  Receipt Date: 20180301
  Transmission Date: 20180508
  Serious: Yes (Hospitalization, Other)
  Sender: FDA-Public Use
  Company Number: DE-VIIV HEALTHCARE LIMITED-DE2017GSK129912

PATIENT
  Age: 51 Year
  Sex: Male
  Weight: 83 kg

DRUGS (1)
  1. TRIUMEQ [Suspect]
     Active Substance: ABACAVIR SULFATE\DOLUTEGRAVIR SODIUM\LAMIVUDINE
     Indication: HIV INFECTION
     Dosage: UNK
     Route: 065
     Dates: start: 20160822

REACTIONS (13)
  - Anal cancer [Unknown]
  - Atrial fibrillation [Not Recovered/Not Resolved]
  - Gastritis haemorrhagic [Unknown]
  - Anogenital warts [Unknown]
  - Lipoprotein (a) increased [Unknown]
  - Coagulopathy [Unknown]
  - Prostate examination abnormal [Unknown]
  - Pulmonary embolism [Recovering/Resolving]
  - Varicose vein [Unknown]
  - Hypertension [Unknown]
  - Radiation skin injury [Recovering/Resolving]
  - Myocardial ischaemia [Unknown]
  - General physical health deterioration [Not Recovered/Not Resolved]

NARRATIVE: CASE EVENT DATE: 20170101
